FAERS Safety Report 8536081-3 (Version None)
Quarter: 2012Q3

REPORT INFORMATION
  Report Type: 
  Country: None (occurrence: None)
  Receive Date: 20120718
  Receipt Date: 20120718
  Transmission Date: 20120928
  Serious: Yes (Other)
  Sender: FDA-Public Use
  Company Number: None

PATIENT
  Sex: Female
  Weight: 72.7 kg

DRUGS (1)
  1. REBIF [Suspect]
     Indication: MULTIPLE SCLEROSIS
     Dosage: 44MCG/.5ML, TITRATING 1/2  3 TIMES/WEEK SUBCUTANEOUSLY
     Route: 058
     Dates: start: 20120517

REACTIONS (1)
  - ANXIETY [None]
